FAERS Safety Report 10625304 (Version 1)
Quarter: 2014Q4

REPORT INFORMATION
  Report Type: Spontaneous
  Country: IR (occurrence: None)
  Receive Date: 20141202
  Receipt Date: 20141202
  Transmission Date: 20150529
  Serious: Yes (Hospitalization)
  Sender: FDA-Public Use
  Company Number: NSR_01710_2014

PATIENT
  Age: 44 Year
  Sex: Female

DRUGS (3)
  1. LEVOTHYROXINE [Concomitant]
     Active Substance: LEVOTHYROXINE
  2. CLONAZEPAM. [Concomitant]
     Active Substance: CLONAZEPAM
  3. PROPRANOLOL [Suspect]
     Active Substance: PROPRANOLOL\PROPRANOLOL HYDROCHLORIDE
     Indication: HYPOTHYROIDISM
     Dosage: (DF)

REACTIONS (4)
  - Azotaemia [None]
  - Retroperitoneal fibrosis [None]
  - Hydronephrosis [None]
  - Electrolyte imbalance [None]
